FAERS Safety Report 19760883 (Version 1)
Quarter: 2021Q3

REPORT INFORMATION
  Report Type: Spontaneous
  Country: US (occurrence: US)
  Receive Date: 20210825
  Receipt Date: 20210825
  Transmission Date: 20211014
  Serious: No
  Sender: FDA-Public Use
  Company Number: None

PATIENT
  Age: 74 Year
  Sex: Female
  Weight: 51.26 kg

DRUGS (2)
  1. TYMLOS [Suspect]
     Active Substance: ABALOPARATIDE
     Indication: PATHOLOGICAL FRACTURE
     Dosage: ?          OTHER STRENGTH:3120/1.56 UG/ML;?
     Route: 058
     Dates: start: 202108
  2. TYMLOS [Suspect]
     Active Substance: ABALOPARATIDE
     Indication: SENILE OSTEOPOROSIS

REACTIONS (2)
  - Hospitalisation [None]
  - Therapy interrupted [None]
